FAERS Safety Report 10676866 (Version 1)
Quarter: 2014Q4

REPORT INFORMATION
  Report Type: Spontaneous
  Country: GB (occurrence: GB)
  Receive Date: 20141226
  Receipt Date: 20141226
  Transmission Date: 20150529
  Serious: Yes (Other)
  Sender: FDA-Public Use
  Company Number: GB-BAYER-2014-187620

PATIENT
  Sex: Female

DRUGS (2)
  1. NIFEDIPINE. [Suspect]
     Active Substance: NIFEDIPINE
     Dosage: UNK
     Route: 015
     Dates: start: 201406
  2. NIFEDIPINE. [Suspect]
     Active Substance: NIFEDIPINE
     Dosage: UNK
     Route: 015
     Dates: start: 201406

REACTIONS (3)
  - Foetal exposure during pregnancy [None]
  - Hydrocephalus [None]
  - Premature baby [Recovered/Resolved]

NARRATIVE: CASE EVENT DATE: 201406
